FAERS Safety Report 10965280 (Version 1)
Quarter: 2015Q1

REPORT INFORMATION
  Report Type: Spontaneous
  Country: US (occurrence: US)
  Receive Date: 20150330
  Receipt Date: 20150330
  Transmission Date: 20150721
  Serious: No
  Sender: FDA-Public Use
  Company Number: US-PFIZER INC-2015104321

PATIENT
  Age: 55 Year
  Sex: Female
  Weight: 109 kg

DRUGS (5)
  1. NEURONTIN [Suspect]
     Active Substance: GABAPENTIN
     Dosage: 100 MG CAPSULES, 2 CAPSULES AT NIGHT FOR 3 DAYS
     Route: 048
  2. MULTIVITAMINS [Concomitant]
     Active Substance: VITAMINS
     Dosage: 1 DF, DAILY
  3. NEURONTIN [Suspect]
     Active Substance: GABAPENTIN
     Dosage: 100MG CAPSULES, 2 CAPSULES TWICE A DAY THEREAFTER, 200 IN THE MORNING AND 200 IN THE EVENING
     Route: 048
  4. NEURONTIN [Suspect]
     Active Substance: GABAPENTIN
     Indication: HYPOAESTHESIA
     Dosage: 100MG CAPSULES, 1 CAPSULE BY MOUTH AT BEDTIME FOR 3 DAYS
     Route: 048
     Dates: start: 201402
  5. TYLENOL [Concomitant]
     Active Substance: ACETAMINOPHEN
     Indication: HEADACHE
     Dosage: 500MG, 2 AT A TIME TWICE A DAY

REACTIONS (3)
  - Vitamin B12 deficiency [Not Recovered/Not Resolved]
  - Dizziness [Recovered/Resolved]
  - Drug ineffective for unapproved indication [Not Recovered/Not Resolved]

NARRATIVE: CASE EVENT DATE: 201402
